FAERS Safety Report 21818811 (Version 1)
Quarter: 2023Q1

REPORT INFORMATION
  Report Type: Spontaneous
  Country: IT (occurrence: IT)
  Receive Date: 20230104
  Receipt Date: 20230104
  Transmission Date: 20230418
  Serious: Yes (Other)
  Sender: FDA-Public Use
  Company Number: IT-SUN PHARMACEUTICAL INDUSTRIES LTD-2022R1-362164

PATIENT
  Age: 73 Year
  Sex: Female

DRUGS (1)
  1. AZACITIDINE [Suspect]
     Active Substance: AZACITIDINE
     Indication: Chemotherapy
     Dosage: 75 MILLIGRAM/SQ. METER
     Route: 058
     Dates: start: 201907

REACTIONS (2)
  - Pancytopenia [Recovered/Resolved]
  - Disease recurrence [Unknown]
